FAERS Safety Report 19421123 (Version 1)
Quarter: 2021Q2

REPORT INFORMATION
  Report Type: Report from Study
  Country: None (occurrence: US)
  Receive Date: 20210616
  Receipt Date: 20210616
  Transmission Date: 20210717
  Serious: Yes (Other)
  Sender: FDA-Public Use
  Company Number: US-ABBVIE-21K-163-3943822-00

PATIENT
  Age: 67 Year
  Sex: Male

DRUGS (1)
  1. HUMIRA [Suspect]
     Active Substance: ADALIMUMAB
     Indication: CROHN^S DISEASE
     Route: 058

REACTIONS (6)
  - Arthralgia [Unknown]
  - Colitis [Unknown]
  - Crohn^s disease [Unknown]
  - Inflammation [Unknown]
  - Illness [Unknown]
  - Discharge [Unknown]

NARRATIVE: CASE EVENT DATE: 202103
